FAERS Safety Report 19376855 (Version 1)
Quarter: 2021Q2

REPORT INFORMATION
  Report Type: Report from Study
  Country: GB (occurrence: GB)
  Receive Date: 20210604
  Receipt Date: 20210604
  Transmission Date: 20210717
  Serious: Yes (Other)
  Sender: FDA-Public Use
  Company Number: GB-MYLANLABS-2021M1032439

PATIENT
  Age: 27 Week
  Sex: Male

DRUGS (4)
  1. ENOXAPARIN SODIUM. [Suspect]
     Active Substance: ENOXAPARIN SODIUM
     Indication: THROMBOSIS PROPHYLAXIS
     Dosage: 0.89 MILLIGRAM/KILOGRAM, QD
     Route: 058
  2. ENOXAPARIN SODIUM. [Suspect]
     Active Substance: ENOXAPARIN SODIUM
     Dosage: 5.62 MILLIGRAM/KILOGRAM, QD MAXIMUM DOSE
     Route: 058
  3. WARFARIN [Suspect]
     Active Substance: WARFARIN
     Indication: THROMBOSIS PROPHYLAXIS
     Dosage: 0.2 MILLIGRAM/KILOGRAM, QD
     Route: 065
  4. WARFARIN [Suspect]
     Active Substance: WARFARIN
     Dosage: 0.89 MILLIGRAM/KILOGRAM, QD MAXIMUM DOSE
     Route: 065

REACTIONS (1)
  - Drug ineffective [Unknown]
